FAERS Safety Report 10514093 (Version 1)
Quarter: 2014Q4

REPORT INFORMATION
  Report Type: Spontaneous
  Country: CA (occurrence: CA)
  Receive Date: 20141013
  Receipt Date: 20141013
  Transmission Date: 20150528
  Serious: Yes (Hospitalization)
  Sender: FDA-Public Use
  Company Number: CA-PFIZER INC-2014279373

PATIENT
  Age: 74 Year
  Sex: Female

DRUGS (8)
  1. BISACODYL. [Suspect]
     Active Substance: BISACODYL
     Dosage: 10 MG, DAILY
  2. DOCUSATE SODIUM. [Suspect]
     Active Substance: DOCUSATE SODIUM
     Dosage: UNK
  3. LACTULOSE. [Suspect]
     Active Substance: LACTULOSE
     Dosage: 30 MG, DAILY
  4. MIRTAZAPINE. [Suspect]
     Active Substance: MIRTAZAPINE
     Dosage: 30 MG, DAILY
  5. DIMENHYDRINATE. [Suspect]
     Active Substance: DIMENHYDRINATE
     Dosage: 50 MG, Q4H (EVERY FOUR HOURS)
  6. FUROSEMIDE. [Suspect]
     Active Substance: FUROSEMIDE
     Dosage: 40 MG, DAILY
  7. SODIUM PHOSPHATE [Concomitant]
     Active Substance: SODIUM PHOSPHATE
     Dosage: 130 ML, DAILY
  8. MORPHINE SULFATE. [Suspect]
     Active Substance: MORPHINE SULFATE
     Dosage: 30 MG, Q4H (EVERY FOUR HOURS)

REACTIONS (5)
  - Colonic pseudo-obstruction [Recovering/Resolving]
  - Condition aggravated [Recovering/Resolving]
  - Delirium [Recovering/Resolving]
  - Urinary retention [Recovering/Resolving]
  - Intestinal obstruction [Recovering/Resolving]
